FAERS Safety Report 20093147 (Version 1)
Quarter: 2021Q4

REPORT INFORMATION
  Report Type: Spontaneous
  Country: US (occurrence: US)
  Receive Date: 20211120
  Receipt Date: 20211120
  Transmission Date: 20220303
  Serious: Yes (Hospitalization, Other)
  Sender: FDA-Public Use
  Company Number: US-009507513-2111USA002690

PATIENT
  Age: 53 Year
  Sex: Male

DRUGS (1)
  1. STEGLATRO [Suspect]
     Active Substance: ERTUGLIFLOZIN PIDOLATE
     Indication: Type 2 diabetes mellitus
     Dosage: 15 MILLIGRAM, QD
     Route: 048
     Dates: end: 202108

REACTIONS (4)
  - Coronavirus infection [Unknown]
  - Diabetic ketoacidosis [Unknown]
  - Pneumonia [Unknown]
  - Peripheral swelling [Unknown]
